FAERS Safety Report 21269204 (Version 1)
Quarter: 2022Q3

REPORT INFORMATION
  Report Type: Spontaneous
  Country: US (occurrence: None)
  Receive Date: 20220829
  Receipt Date: 20220829
  Transmission Date: 20221027
  Serious: No
  Sender: FDA-Public Use
  Company Number: None

PATIENT
  Sex: Female

DRUGS (1)
  1. DUPIXENT [Suspect]
     Active Substance: DUPILUMAB
     Indication: Dermatitis atopic
     Dosage: 300MG EVERY OTHER WEEK SUBQ?
     Route: 058
     Dates: start: 202204

REACTIONS (6)
  - Vision blurred [None]
  - Condition aggravated [None]
  - Device malfunction [None]
  - Needle issue [None]
  - Device leakage [None]
  - Drug dose omission by device [None]
